FAERS Safety Report 9273096 (Version 2)
Quarter: 2013Q3

REPORT INFORMATION
  Report Type: Spontaneous
  Country: US (occurrence: US)
  Receive Date: 20130506
  Receipt Date: 20130719
  Transmission Date: 20140515
  Serious: Yes (Hospitalization)
  Sender: FDA-Public Use
  Company Number: US-BAYER-2013-053958

PATIENT
  Age: 46 Year
  Sex: Male
  Weight: 122.45 kg

DRUGS (7)
  1. ALEVE CAPLET [Suspect]
     Indication: BACK PAIN
     Dosage: 2 DF, QD
     Dates: end: 20120829
  2. ALEVE CAPLET [Suspect]
     Indication: BACK PAIN
     Dosage: 2 DF, QD
     Route: 048
     Dates: end: 20120829
  3. NIFEDIPIN [Concomitant]
     Indication: HYPERTENSION
     Dosage: 90 MG, QD
  4. LISINOPRIL [Concomitant]
     Dosage: 20 MG, BID
  5. CLONIDINE [Concomitant]
     Dosage: 0.2 MG, BID
  6. LABETALOL HCL [Concomitant]
     Dosage: 200 MG, BID
  7. HYDRALAZINE [Concomitant]
     Dosage: 30 MG, TID

REACTIONS (6)
  - Renal failure chronic [Not Recovered/Not Resolved]
  - Liver disorder [Recovered/Resolved]
  - Incorrect drug administration duration [None]
  - Blood pressure increased [Recovered/Resolved]
  - Headache [Recovered/Resolved]
  - Renal disorder [None]
